FAERS Safety Report 8262824-2 (Version None)
Quarter: 2012Q1

REPORT INFORMATION
  Report Type: 
  Country: None (occurrence: None)
  Receive Date: 20120327
  Receipt Date: 20090312
  Transmission Date: 20120608
  Serious: Yes (Other)
  Sender: FDA-Public Use
  Company Number: PHEH2008US10829

PATIENT
  Age: 90 Year
  Sex: Female

DRUGS (1)
  1. GLEEVEC [Suspect]
     Indication: CHRONIC MYELOID LEUKAEMIA
     Dosage: 400 MG, QD, ORAL
     Route: 048
     Dates: start: 20080801

REACTIONS (5)
  - EOSINOPHILIA [None]
  - RASH PRURITIC [None]
  - DECREASED APPETITE [None]
  - PERIORBITAL OEDEMA [None]
  - RASH MACULAR [None]
